FAERS Safety Report 4745167-0 (Version None)
Quarter: 2005Q3

REPORT INFORMATION
  Report Type: 
  Country: None (occurrence: None)
  Receive Date: 20050815
  Receipt Date: 20050802
  Transmission Date: 20060218
  Serious: Yes (Life-Threatening)
  Sender: FDA-Public Use
  Company Number: JP-JNJFOC-20050604060

PATIENT
  Age: 67 Year
  Sex: Female

DRUGS (3)
  1. TAVANIC [Suspect]
     Indication: ASTHMA
     Route: 042
     Dates: start: 20050525, end: 20050525
  2. CLAMOXYL [Concomitant]
     Route: 065
     Dates: start: 20050523, end: 20050525
  3. SOLU-MEDROL [Concomitant]
     Route: 065

REACTIONS (2)
  - ANAPHYLACTIC SHOCK [None]
  - STATUS ASTHMATICUS [None]
